FAERS Safety Report 19379501 (Version 1)
Quarter: 2021Q2

REPORT INFORMATION
  Report Type: Spontaneous
  Country: TC (occurrence: TC)
  Receive Date: 20210607
  Receipt Date: 20210607
  Transmission Date: 20210717
  Serious: Yes (Other)
  Sender: FDA-Public Use
  Company Number: TC-VIFOR (INTERNATIONAL) INC.-VIT-2021-04771

PATIENT
  Age: 66 Year
  Sex: Male

DRUGS (1)
  1. MIRCERA [Suspect]
     Active Substance: METHOXY POLYETHYLENE GLYCOL-EPOETIN BETA
     Indication: ANAEMIA OF CHRONIC DISEASE
     Route: 065

REACTIONS (1)
  - Haemoglobin increased [Unknown]
